FAERS Safety Report 18079157 (Version 1)
Quarter: 2020Q3

REPORT INFORMATION
  Report Type: Spontaneous
  Country: IE (occurrence: IE)
  Receive Date: 20200728
  Receipt Date: 20200728
  Transmission Date: 20201103
  Serious: Yes (Other)
  Sender: FDA-Public Use
  Company Number: IE-ASTRAZENECA-2020SE92023

PATIENT
  Sex: Male

DRUGS (3)
  1. ESOMEPRAZOLE (G) [Concomitant]
     Active Substance: ESOMEPRAZOLE
  2. ROSUVASTATIN (G) [Suspect]
     Active Substance: ROSUVASTATIN
     Dosage: TAKING SINCE THE END OF 2017. RECENTLY CHANGED BRAND
     Route: 048
     Dates: start: 2017
  3. ASPIRIN (GENERIC) [Suspect]
     Active Substance: ASPIRIN
     Dosage: HAD BEEN TAKING SINCE THE END OF 2017. RECENTLY CHANGED BRAND
     Route: 065
     Dates: start: 2017

REACTIONS (4)
  - Product substitution issue [Unknown]
  - Tinnitus [Not Recovered/Not Resolved]
  - Hypoacusis [Not Recovered/Not Resolved]
  - Muscle disorder [Not Recovered/Not Resolved]
